FAERS Safety Report 17906456 (Version 1)
Quarter: 2020Q2

REPORT INFORMATION
  Report Type: Spontaneous
  Country: US (occurrence: US)
  Receive Date: 20200616
  Receipt Date: 20200616
  Transmission Date: 20200714
  Serious: Yes (Death)
  Sender: FDA-Public Use
  Company Number: None

PATIENT
  Sex: Female

DRUGS (6)
  1. MYCOPHENOLATE 250 MG [Concomitant]
     Active Substance: MYCOPHENOLIC ACID
     Dates: start: 20180119
  2. SIROLIMUS 1 MG [Concomitant]
     Active Substance: SIROLIMUS
     Dates: start: 20181228
  3. CALCITRIOL 0.25 MCG [Concomitant]
     Active Substance: CALCITRIOL
  4. TACROLIMUS. [Suspect]
     Active Substance: TACROLIMUS
     Indication: RENAL TRANSPLANT
     Dosage: ?          OTHER FREQUENCY:Q 12 HOURS;?
     Route: 048
  5. FUROSEMIDE 20 MG [Concomitant]
     Active Substance: FUROSEMIDE
  6. LABETALOL 100 MG [Concomitant]
     Active Substance: LABETALOL HYDROCHLORIDE

REACTIONS (1)
  - Death [None]
